FAERS Safety Report 7943734-4 (Version None)
Quarter: 2011Q4

REPORT INFORMATION
  Report Type: 
  Country: None (occurrence: None)
  Receive Date: 20111128
  Receipt Date: 20111118
  Transmission Date: 20120403
  Serious: Yes (Other)
  Sender: FDA-Public Use
  Company Number: US-ABBOTT-11P-163-0853086-00

PATIENT
  Sex: Female
  Weight: 63.56 kg

DRUGS (11)
  1. VIT C [Concomitant]
     Indication: PRODUCT USED FOR UNKNOWN INDICATION
  2. FOLIC ACID [Concomitant]
     Indication: PRODUCT USED FOR UNKNOWN INDICATION
  3. HUMIRA [Suspect]
     Indication: RHEUMATOID ARTHRITIS
     Dates: start: 20110401, end: 20110901
  4. PREDNISONE TAB [Concomitant]
     Indication: PRODUCT USED FOR UNKNOWN INDICATION
  5. LOVAZA [Concomitant]
     Indication: PRODUCT USED FOR UNKNOWN INDICATION
  6. EXTRA STRENGTH TYLENOL [Concomitant]
     Indication: PAIN
  7. PLAQUENIL [Concomitant]
     Indication: RHEUMATOID ARTHRITIS
  8. DARVOCET-N 50 [Concomitant]
     Indication: PAIN
  9. HUMIRA [Suspect]
     Dates: start: 20111001
  10. MOBIC [Concomitant]
     Indication: RHEUMATOID ARTHRITIS
  11. MULTI-VITAMIN [Concomitant]
     Indication: PRODUCT USED FOR UNKNOWN INDICATION

REACTIONS (9)
  - SUPRAVENTRICULAR TACHYCARDIA [None]
  - MUSCULOSKELETAL STIFFNESS [None]
  - HEART RATE INCREASED [None]
  - INJECTION SITE HAEMORRHAGE [None]
  - INJECTION SITE PAIN [None]
  - INJECTION SITE HAEMATOMA [None]
  - PAIN [None]
  - CHEST DISCOMFORT [None]
  - DYSPNOEA [None]
